FAERS Safety Report 11720143 (Version 1)
Quarter: 2015Q4

REPORT INFORMATION
  Report Type: Report from Study
  Country: IT (occurrence: IT)
  Receive Date: 20151110
  Receipt Date: 20151110
  Transmission Date: 20160304
  Serious: Yes (Death)
  Sender: FDA-Public Use
  Company Number: IT-ROCHE-1633214

PATIENT
  Age: 61 Year
  Sex: Female

DRUGS (2)
  1. TRABECTEDIN [Suspect]
     Active Substance: TRABECTEDIN
     Indication: OVARIAN CANCER
     Dosage: ACTUAL DOSE ADMINISTERED : 0.8 MG/M2?LAST DATE OF ADMINISTRATION BEFORE SAE 12/AUG/2015, CYCLE 6.
     Route: 065
     Dates: start: 20150428
  2. BEVACIZUMAB [Suspect]
     Active Substance: BEVACIZUMAB
     Indication: OVARIAN CANCER
     Dosage: LAST DATE OF ADMINISTRATION BEFORE SAE 12/AUG/2015, CYCLE 6.
     Route: 065
     Dates: start: 20150428

REACTIONS (2)
  - Ascites [Fatal]
  - Acute abdomen [Fatal]

NARRATIVE: CASE EVENT DATE: 20150902
